FAERS Safety Report 8244828 (Version 6)
Quarter: 2016Q2

REPORT INFORMATION
  Report Type: Report from Study
  Country: BE (occurrence: BE)
  Receive Date: 20111115
  Receipt Date: 20160504
  Transmission Date: 20160815
  Serious: Yes (Hospitalization)
  Sender: FDA-Public Use
  Company Number: PHHO2011BE17338

PATIENT
  Age: 66 Year
  Sex: Male
  Weight: 88 kg

DRUGS (7)
  1. ALDACTONE [Concomitant]
     Active Substance: SPIRONOLACTONE
     Indication: CARDIAC FAILURE
     Dosage: 25 MG/ DAY
     Route: 065
     Dates: start: 20110225
  2. BURINEX [Concomitant]
     Active Substance: BUMETANIDE
     Indication: CARDIAC FAILURE
     Dosage: 2 MG/ DAY
     Route: 065
     Dates: start: 20110927
  3. COMPARATOR ENALAPRIL [Suspect]
     Active Substance: ENALAPRIL
     Indication: CARDIAC FAILURE
     Dosage: 20 MG, (RUN IN PHASE)
     Route: 048
     Dates: start: 20110909, end: 20111026
  4. ALISKIREN [Suspect]
     Active Substance: ALISKIREN
     Dosage: 150 MG, (RUN IN PHASE)
     Route: 048
     Dates: start: 20111017, end: 20111026
  5. ALISKIREN [Suspect]
     Active Substance: ALISKIREN
     Indication: CARDIAC FAILURE
     Dosage: 150 MG, (RUN IN PHASE)
     Route: 048
     Dates: start: 20110927, end: 20111012
  6. NOBITEN [Concomitant]
     Active Substance: NEBIVOLOL
     Indication: CARDIAC FAILURE
     Dosage: 5 MG/ DAY
     Route: 065
     Dates: start: 20110519
  7. ENALAPRIL [Suspect]
     Active Substance: ENALAPRIL
     Dosage: 10 MG, BID
     Route: 048
     Dates: start: 20111026, end: 20111205

REACTIONS (1)
  - Cardiac failure [Unknown]

NARRATIVE: CASE EVENT DATE: 20111012
